FAERS Safety Report 16482464 (Version 1)
Quarter: 2019Q2

REPORT INFORMATION
  Report Type: Spontaneous
  Country: DK (occurrence: DK)
  Receive Date: 20190627
  Receipt Date: 20190627
  Transmission Date: 20190711
  Serious: Yes (Other)
  Sender: FDA-Public Use
  Company Number: DK-SUN PHARMACEUTICAL INDUSTRIES LTD-2019R1-211730

PATIENT
  Age: 19 Year
  Sex: Female

DRUGS (1)
  1. PARACETAMOL [Suspect]
     Active Substance: ACETAMINOPHEN
     Indication: CLAVICLE FRACTURE
     Dosage: 8 GRAM DAILY FOR 3 DAYS, 6 GRAM, DAILY, FOR 7 DAYS, 4 GRAM, DAILY,  FOR 1 DAYS
     Route: 065

REACTIONS (2)
  - Product administration error [Unknown]
  - Overdose [Unknown]
